FAERS Safety Report 10681817 (Version 1)
Quarter: 2014Q4

REPORT INFORMATION
  Report Type: Spontaneous
  Country: JP (occurrence: None)
  Receive Date: 20141224
  Receipt Date: 20141224
  Transmission Date: 20150529
  Serious: Yes (Other)
  Sender: FDA-Public Use
  Company Number: KAD201412-001677

PATIENT
  Age: 70 Year
  Sex: Female

DRUGS (4)
  1. RIBAVIRIN (RIBAVIRIN) [Suspect]
     Active Substance: RIBAVIRIN
     Indication: HEPATITIS C
     Dates: start: 200608
  2. TACROLIMUS (TACROLIMUS) [Suspect]
     Active Substance: TACROLIMUS
  3. TELAPREVIR (TELAPREVIR) [Suspect]
     Active Substance: TELAPREVIR
     Indication: HEPATITIS C
  4. PEGINTERFERON ALFA-2B [Suspect]
     Active Substance: PEGINTERFERON ALFA-2B
     Indication: HEPATITIS C
     Dates: start: 200608

REACTIONS (3)
  - Renal impairment [None]
  - Fatigue [None]
  - Anaemia [None]
